FAERS Safety Report 7810358-9 (Version None)
Quarter: 2011Q4

REPORT INFORMATION
  Report Type: 
  Country: None (occurrence: None)
  Receive Date: 20111012
  Receipt Date: 20111007
  Transmission Date: 20120403
  Serious: Yes (Life-Threatening)
  Sender: FDA-Public Use
  Company Number: US-ASTRAZENECA-2011SE60675

PATIENT
  Age: 48 Year
  Sex: Female
  Weight: 100.7 kg

DRUGS (19)
  1. SOMA [Concomitant]
     Indication: MUSCLE RELAXANT THERAPY
  2. METFORMIN HYDROCHLORIDE [Concomitant]
     Indication: DIABETES MELLITUS
  3. SEROQUEL [Suspect]
     Indication: BIPOLAR DISORDER
     Route: 048
     Dates: start: 20070101
  4. CYMBALTA [Concomitant]
  5. LASIX [Concomitant]
  6. FLECTOR [Concomitant]
  7. SEROQUEL [Suspect]
     Route: 048
  8. SEROQUEL [Suspect]
     Route: 048
  9. ULTRAM [Concomitant]
  10. SEROQUEL [Suspect]
     Indication: SLEEP DISORDER
     Route: 048
     Dates: start: 20070101
  11. PLAQUENIL [Concomitant]
  12. XANAX [Concomitant]
  13. MIRAPEX [Concomitant]
     Dosage: AT NIGHT
  14. VALIUM [Concomitant]
  15. BACTRIM [Concomitant]
     Dosage: TID
  16. SEROQUEL [Suspect]
     Indication: DEPRESSION
     Route: 048
     Dates: start: 20070101
  17. SEROQUEL [Suspect]
     Route: 048
  18. LYRICA [Concomitant]
  19. AZAPRO [Concomitant]

REACTIONS (5)
  - PULSE ABSENT [None]
  - RESPIRATORY ARREST [None]
  - DRUG PRESCRIBING ERROR [None]
  - DRUG INEFFECTIVE FOR UNAPPROVED INDICATION [None]
  - INSOMNIA [None]
